FAERS Safety Report 16375868 (Version 1)
Quarter: 2019Q2

REPORT INFORMATION
  Report Type: Spontaneous
  Country: CN (occurrence: CN)
  Receive Date: 20190531
  Receipt Date: 20190531
  Transmission Date: 20190711
  Serious: Yes (Hospitalization)
  Sender: FDA-Public Use
  Company Number: CN-ROCHE-2328143

PATIENT
  Age: 52 Year
  Sex: Female
  Weight: 64 kg

DRUGS (6)
  1. XELODA [Suspect]
     Active Substance: CAPECITABINE
     Indication: RECTAL ADENOCARCINOMA
     Route: 048
     Dates: start: 20190515
  2. AVASTIN [Suspect]
     Active Substance: BEVACIZUMAB
     Indication: RECTAL ADENOCARCINOMA
     Route: 041
     Dates: start: 20190515
  3. RANITIDINE HYDROCHLORIDE. [Concomitant]
     Active Substance: RANITIDINE HYDROCHLORIDE
     Indication: RECTAL ADENOCARCINOMA
     Route: 041
     Dates: start: 20190515, end: 20190516
  4. OXALIPLATIN. [Suspect]
     Active Substance: OXALIPLATIN
     Indication: RECTAL ADENOCARCINOMA
     Route: 041
     Dates: start: 20190515
  5. MEGESTROL ACETATE. [Concomitant]
     Active Substance: MEGESTROL ACETATE
     Indication: RECTAL ADENOCARCINOMA
     Route: 048
     Dates: start: 20190515, end: 20190516
  6. ONDANSETRON HYDROCHLORIDE. [Concomitant]
     Active Substance: ONDANSETRON HYDROCHLORIDE
     Indication: RECTAL ADENOCARCINOMA
     Route: 048
     Dates: start: 20190515, end: 20190516

REACTIONS (1)
  - Intestinal obstruction [Recovering/Resolving]

NARRATIVE: CASE EVENT DATE: 20190520
